FAERS Safety Report 6772277-9 (Version None)
Quarter: 2010Q2

REPORT INFORMATION
  Report Type: 
  Country: None (occurrence: None)
  Receive Date: 20100614
  Receipt Date: 20100528
  Transmission Date: 20101027
  Serious: Yes (Hospitalization)
  Sender: FDA-Public Use
  Company Number: 2009001258

PATIENT
  Age: 47 Year
  Sex: Male

DRUGS (8)
  1. ERLOTINIB (ERLOTINIB) (TABLET) (ERLOTINIB) [Suspect]
     Indication: LUNG NEOPLASM MALIGNANT
     Dosage: (150 MG, QD), ORAL
     Route: 048
     Dates: start: 20090216, end: 20090224
  2. RISPERDAL [Concomitant]
  3. NOVOLIN R [Concomitant]
  4. BUFORMIN [Concomitant]
  5. WYPAX (LORAEPAM) [Concomitant]
  6. LANSOPRAZOLE [Concomitant]
  7. CODEINE PHOSPHATE (CODINE PHOSPHATE) [Concomitant]
  8. MAGNESIUM OXIDE (MAGNESIUM OXIDE) [Concomitant]

REACTIONS (4)
  - DISSEMINATED INTRAVASCULAR COAGULATION [None]
  - MALIGNANT NEOPLASM PROGRESSION [None]
  - PNEUMONIA [None]
  - RASH [None]
